FAERS Safety Report 5775006-0 (Version None)
Quarter: 2008Q2

REPORT INFORMATION
  Report Type: 
  Country: None (occurrence: None)
  Receive Date: 20080617
  Receipt Date: 20080522
  Transmission Date: 20081010
  Serious: Yes (Hospitalization)
  Sender: FDA-Public Use
  Company Number: PHHY2008AR00554

PATIENT
  Sex: Female

DRUGS (2)
  1. ZOLEDRONIC ACID [Suspect]
     Indication: OSTEOPOROSIS
     Dosage: 1 AMP ANNUAL
     Dates: start: 20071019
  2. CALCITRIOL [Concomitant]

REACTIONS (6)
  - ASTHENIA [None]
  - BED REST [None]
  - DRUG ADMINISTRATION ERROR [None]
  - HEADACHE [None]
  - INFLUENZA LIKE ILLNESS [None]
  - PHOTOPHOBIA [None]
